FAERS Safety Report 10078414 (Version 1)
Quarter: 2014Q2

REPORT INFORMATION
  Report Type: Spontaneous
  Country: US (occurrence: None)
  Receive Date: 20140401
  Receipt Date: 20140401
  Transmission Date: 20141212
  Serious: Yes (Hospitalization)
  Sender: FDA-Public Use
  Company Number: HA12-330-AE

PATIENT
  Age: 31 Year
  Sex: Male
  Weight: 90.72 kg

DRUGS (1)
  1. CITALOPRAM [Suspect]
     Indication: ANXIETY
     Dosage: 1 TABLET
     Route: 048
     Dates: start: 201208

REACTIONS (3)
  - Convulsion [None]
  - Amnesia [None]
  - Aphasia [None]
